FAERS Safety Report 14034804 (Version 2)
Quarter: 2017Q4

REPORT INFORMATION
  Report Type: Spontaneous
  Country: US (occurrence: US)
  Receive Date: 20171003
  Receipt Date: 20171025
  Transmission Date: 20180321
  Serious: Yes (Other)
  Sender: FDA-Public Use
  Company Number: US-GLAXOSMITHKLINE-US2017GSK151042

PATIENT
  Age: 47 Year
  Sex: Female

DRUGS (12)
  1. BENLYSTA [Suspect]
     Active Substance: BELIMUMAB
     Indication: SYSTEMIC LUPUS ERYTHEMATOSUS
     Dosage: UNK, CYC
     Route: 042
     Dates: start: 20170616
  2. CARVEDIOL [Concomitant]
     Active Substance: CARVEDILOL
  3. RASUVO [Concomitant]
     Active Substance: METHOTREXATE SODIUM
  4. VALSARTAN. [Concomitant]
     Active Substance: VALSARTAN
  5. PLAQUENIL [Concomitant]
     Active Substance: HYDROXYCHLOROQUINE SULFATE
  6. FLEXERIL [Concomitant]
     Active Substance: CYCLOBENZAPRINE HYDROCHLORIDE
  7. AUGMENTIN [Suspect]
     Active Substance: AMOXICILLIN\CLAVULANATE POTASSIUM
  8. MTX [Concomitant]
     Active Substance: METHOTREXATE SODIUM
  9. ALLEGRA [Concomitant]
     Active Substance: FEXOFENADINE HYDROCHLORIDE
  10. AMLODIPINE BESYLATE. [Concomitant]
     Active Substance: AMLODIPINE BESYLATE
  11. AMITRIPTYLINE [Concomitant]
     Active Substance: AMITRIPTYLINE
  12. GABAPETIN [Concomitant]
     Active Substance: GABAPENTIN

REACTIONS (12)
  - Drug dose omission [Unknown]
  - Fatigue [Recovered/Resolved]
  - Headache [Recovered/Resolved]
  - Subcutaneous abscess [Recovered/Resolved]
  - Erythema [Unknown]
  - Pain of skin [Unknown]
  - Fluctuance [Unknown]
  - Skin swelling [Unknown]
  - Abscess [Recovered/Resolved]
  - Furuncle [Recovered/Resolved]
  - Wound infection staphylococcal [Recovered/Resolved]
  - Drug ineffective [Unknown]

NARRATIVE: CASE EVENT DATE: 20170616
